FAERS Safety Report 5991200-8 (Version None)
Quarter: 2008Q4

REPORT INFORMATION
  Report Type: 
  Country: None (occurrence: None)
  Receive Date: 20081202
  Receipt Date: 20071015
  Transmission Date: 20090506
  Serious: Yes (Other)
  Sender: FDA-Public Use
  Company Number: WAES 0705USA00822

PATIENT
  Age: 76 Year
  Sex: Female

DRUGS (4)
  1. TAB FOSAMAX 10 MG; TAB FOSAMAX 70 MG [Suspect]
     Indication: OSTEOPOROSIS
     Dosage: 70 MG/WKY/PO;70MG/MKY/PO
     Route: 048
     Dates: start: 20010227, end: 20031201
  2. TAB FOSAMAX 10 MG; TAB FOSAMAX 70 MG [Suspect]
     Indication: OSTEOPOROSIS
     Dosage: 70 MG/WKY/PO;70MG/MKY/PO
     Route: 048
     Dates: start: 20040412, end: 20060201
  3. CALCIUM(UNSPECIFIED) [Concomitant]
  4. . [Concomitant]

REACTIONS (11)
  - ARTHRITIS [None]
  - BLOOD GLUCOSE INCREASED [None]
  - BURSITIS [None]
  - COLONIC POLYP [None]
  - DRUG ADMINISTRATION ERROR [None]
  - EXOSTOSIS [None]
  - HEADACHE [None]
  - OSTEOMYELITIS [None]
  - OSTEONECROSIS [None]
  - SINUS HEADACHE [None]
  - TRIGGER FINGER [None]
